FAERS Safety Report 10034391 (Version 1)
Quarter: 2014Q1

REPORT INFORMATION
  Report Type: Spontaneous
  Country: US (occurrence: None)
  Receive Date: 20140321
  Receipt Date: 20140321
  Transmission Date: 20141002
  Serious: Yes (Other)
  Sender: FDA-Public Use
  Company Number: AUR-APL-2014-03059

PATIENT
  Sex: 0

DRUGS (1)
  1. CLINDAMYCIN (CLINDAMYCIN) [Suspect]
     Indication: PRODUCT USED FOR UNKNOWN INDICATION

REACTIONS (4)
  - Clostridium difficile infection [None]
  - Muscle necrosis [None]
  - Colitis ischaemic [None]
  - Iatrogenic injury [None]
